FAERS Safety Report 17864393 (Version 2)
Quarter: 2024Q1

REPORT INFORMATION
  Report Type: Spontaneous
  Country: SE (occurrence: GB)
  Receive Date: 20200605
  Receipt Date: 20240125
  Transmission Date: 20240410
  Serious: Yes (Other)
  Sender: FDA-Public Use
  Company Number: SE-MYLANLABS-2020M1053631

PATIENT
  Age: 40 Year
  Sex: Male

DRUGS (2)
  1. TRAMADOL [Suspect]
     Active Substance: TRAMADOL\TRAMADOL HYDROCHLORIDE
     Indication: Back pain
     Dosage: 50 MILLIGRAM, QD
     Route: 065
  2. SERTRALINE [Suspect]
     Active Substance: SERTRALINE HYDROCHLORIDE
     Indication: Product used for unknown indication
     Dosage: UNK
     Route: 065

REACTIONS (15)
  - Hallucination, auditory [Unknown]
  - Suicidal ideation [Unknown]
  - Impaired work ability [Recovered/Resolved]
  - General physical health deterioration [Recovered/Resolved]
  - Hyperacusis [Recovered/Resolved]
  - Derealisation [Recovered/Resolved]
  - Anger [Unknown]
  - Cognitive disorder [Recovered/Resolved]
  - Nervous system disorder [Recovered/Resolved]
  - Photophobia [Recovered/Resolved]
  - Psychotic disorder [Recovered/Resolved]
  - Memory impairment [Recovered/Resolved]
  - Fatigue [Recovered/Resolved]
  - Anxiety [Recovered/Resolved]
  - Sexual dysfunction [Unknown]
